FAERS Safety Report 7989417-6 (Version None)
Quarter: 2011Q4

REPORT INFORMATION
  Report Type: 
  Country: None (occurrence: None)
  Receive Date: 20111219
  Receipt Date: 20111207
  Transmission Date: 20120403
  Serious: Yes (Hospitalization, Other)
  Sender: FDA-Public Use
  Company Number: MX-SANOFI-AVENTIS-2011SA080622

PATIENT
  Age: 66 Year
  Sex: Female
  Weight: 68 kg

DRUGS (5)
  1. HUMALOG [Concomitant]
     Indication: TYPE 1 DIABETES MELLITUS
     Dosage: DOSE:1 IU FOR EACH 100 MG/DL OF GLUCOSE
     Route: 058
     Dates: start: 20060101
  2. NOVOTIRAL [Concomitant]
     Indication: HYPOTHYROIDISM
     Dosage: STRENGTH:20 MCG OF TRIIODOTHYRONINE (T3) + 100 MCG OF THYROXINE
     Route: 048
     Dates: end: 20070101
  3. LEVOTHYROXINE SODIUM [Concomitant]
     Indication: HYPOTHYROIDISM
     Dosage: DOSAGE: 3/4 TABLET OF 100 MCG EVERY 24 HOURS.
     Route: 048
  4. LANTUS [Suspect]
     Indication: TYPE 1 DIABETES MELLITUS
     Route: 058
     Dates: start: 20050101
  5. ENALAPRIL MALEATE AND HYDROCHLOROTHIAZIDE [Concomitant]
     Indication: HYPERTENSION
     Dosage: STRENGTH:20 MG OF ENALAPRIL + 12.5 MG OF HYDROCHLOROTHIAZIDE
     Route: 048
     Dates: start: 19850101

REACTIONS (5)
  - FEMUR FRACTURE [None]
  - DIARRHOEA [None]
  - MALAISE [None]
  - CATARACT [None]
  - BLOOD GLUCOSE FLUCTUATION [None]
